FAERS Safety Report 8833029 (Version 3)
Quarter: 2019Q2

REPORT INFORMATION
  Report Type: Spontaneous
  Country: SE (occurrence: SE)
  Receive Date: 20121010
  Receipt Date: 20190416
  Transmission Date: 20190711
  Serious: Yes (Other)
  Sender: FDA-Public Use
  Company Number: SE-PFIZER INC-2012248994

PATIENT
  Age: 72 Year
  Sex: Male

DRUGS (1)
  1. CORDARONE [Suspect]
     Active Substance: AMIODARONE HYDROCHLORIDE
     Dosage: UNK
     Route: 048
     Dates: start: 200709, end: 20080924

REACTIONS (4)
  - Visual impairment [Recovered/Resolved]
  - Myopia [Recovered/Resolved]
  - Keratopathy [Recovered/Resolved]
  - Optic neuropathy [Recovered/Resolved]

NARRATIVE: CASE EVENT DATE: 20080924
